FAERS Safety Report 6025702-5 (Version None)
Quarter: 2008Q4

REPORT INFORMATION
  Report Type: 
  Country: None (occurrence: None)
  Receive Date: 20081231
  Receipt Date: 20081218
  Transmission Date: 20090506
  Serious: Yes (Hospitalization)
  Sender: FDA-Public Use
  Company Number: TR-GENENTECH-274708

PATIENT
  Sex: Male

DRUGS (5)
  1. BEVACIZUMAB [Suspect]
     Indication: COLORECTAL CANCER METASTATIC
     Dosage: 495 MG, Q21D
     Route: 051
  2. CAPECITABINE [Suspect]
     Indication: COLORECTAL CANCER METASTATIC
     Dosage: 3300 MG, Q21D
     Route: 048
  3. OXALIPLATIN [Suspect]
     Indication: COLORECTAL CANCER METASTATIC
     Dosage: 220 MG, Q21D
     Route: 051
  4. ONDANSETRON [Concomitant]
     Indication: DRUG USE FOR UNKNOWN INDICATION
  5. DEXAMETHASONE TAB [Concomitant]
     Indication: DRUG USE FOR UNKNOWN INDICATION

REACTIONS (1)
  - PNEUMONIA ASPIRATION [None]
